FAERS Safety Report 15992495 (Version 1)
Quarter: 2019Q1

REPORT INFORMATION
  Report Type: Spontaneous
  Country: GB (occurrence: GB)
  Receive Date: 20190221
  Receipt Date: 20190221
  Transmission Date: 20190418
  Serious: Yes (Disabling)
  Sender: FDA-Public Use
  Company Number: GB-TEVA-2019-GB-1014363

PATIENT
  Age: 82 Year
  Sex: Male
  Weight: 96 kg

DRUGS (12)
  1. LISINOPRIL. [Concomitant]
     Active Substance: LISINOPRIL
     Dosage: 1 DOSAGE FORMS DAILY;
     Dates: start: 20190124
  2. HYDROXOCOBALAMIN [Concomitant]
     Active Substance: HYDROXOCOBALAMIN
     Dosage: USE AS DIRECTED.
     Dates: start: 20181203
  3. ATORVASTATIN [Concomitant]
     Active Substance: ATORVASTATIN
     Dosage: 1 DOSAGE FORMS DAILY; AT NIGHT.
     Dates: start: 20181207
  4. DOXAZOSIN [Suspect]
     Active Substance: DOXAZOSIN\DOXAZOSIN MESYLATE
     Dosage: 1 MILLIGRAM DAILY;
     Route: 065
     Dates: start: 20190116
  5. INDAPAMIDE. [Concomitant]
     Active Substance: INDAPAMIDE
     Dosage: 1 DOSAGE FORMS DAILY; EACH MORNING.
     Dates: start: 20180517
  6. ZEROBASE [Concomitant]
     Active Substance: MINERAL OIL\PARAFFIN
     Dosage: APPLY AS NEEDED.
     Dates: start: 20190124
  7. CANDESARTAN. [Concomitant]
     Active Substance: CANDESARTAN
     Dosage: 1 DOSAGE FORMS DAILY; AT NIGHT.
     Dates: start: 20190102, end: 20190116
  8. LEVOTHYROXINE. [Concomitant]
     Active Substance: LEVOTHYROXINE
     Dosage: 1 DOSAGE FORMS DAILY; EACH MORNING.
     Dates: start: 20180921
  9. LORATADINE. [Concomitant]
     Active Substance: LORATADINE
     Dosage: 1 DOSAGE FORMS DAILY;
     Dates: start: 20190102
  10. PREDNISOLONE. [Concomitant]
     Active Substance: PREDNISOLONE
     Dosage: 8 DOSAGE FORMS DAILY; TAKE 8 TABS ONCE DAILY FOR 5 DAYS THEN REDUCE .
     Dates: start: 20190102, end: 20190103
  11. RAMIPRIL. [Concomitant]
     Active Substance: RAMIPRIL
     Dosage: 1 DOSAGE FORMS DAILY;
     Dates: start: 20180517, end: 20190102
  12. FUCIBET [Concomitant]
     Dosage: 2 DOSAGE FORMS DAILY; APPLY.
     Dates: start: 20190124

REACTIONS (1)
  - Glossodynia [Recovered/Resolved]

NARRATIVE: CASE EVENT DATE: 20190128
